FAERS Safety Report 9692178 (Version 1)
Quarter: 2013Q4

REPORT INFORMATION
  Report Type: Spontaneous
  Country: US (occurrence: US)
  Receive Date: 20131118
  Receipt Date: 20131118
  Transmission Date: 20140711
  Serious: No
  Sender: FDA-Public Use
  Company Number: US-BIOGENIDEC-2013BI108302

PATIENT
  Sex: Male

DRUGS (5)
  1. AVONEX [Suspect]
     Indication: MULTIPLE SCLEROSIS
     Route: 030
     Dates: start: 20130205
  2. AMLODIPINE BESYLATE [Concomitant]
  3. DESMOPRESSIN ACETATE [Concomitant]
  4. LISINOPRIL [Concomitant]
  5. TYLENOL [Concomitant]

REACTIONS (2)
  - Abasia [Unknown]
  - Asthenia [Unknown]
